FAERS Safety Report 18455376 (Version 2)
Quarter: 2022Q1

REPORT INFORMATION
  Report Type: Report from Study
  Country: US (occurrence: US)
  Receive Date: 20201102
  Receipt Date: 20220204
  Transmission Date: 20220423
  Serious: Yes (Death, Hospitalization, Other)
  Sender: FDA-Public Use
  Company Number: US-TAKEDA-2020TUS044935

PATIENT
  Sex: Male

DRUGS (1)
  1. HUMAN IMMUNOGLOBULIN G [Suspect]
     Active Substance: HUMAN IMMUNOGLOBULIN G
     Indication: Product used for unknown indication
     Dosage: UNK UNK, 4/WEEK
     Route: 042

REACTIONS (4)
  - Death [Fatal]
  - Platelet count decreased [Recovered/Resolved]
  - Lung neoplasm malignant [Unknown]
  - Pyrexia [Recovered/Resolved]
